FAERS Safety Report 11742623 (Version 3)
Quarter: 2015Q4

REPORT INFORMATION
  Report Type: Spontaneous
  Country: JP (occurrence: JP)
  Receive Date: 20151116
  Receipt Date: 20151229
  Transmission Date: 20160304
  Serious: Yes (Death)
  Sender: FDA-Public Use
  Company Number: JP-PFIZER INC-2015380075

PATIENT
  Age: 64 Year
  Sex: Male
  Weight: 73.5 kg

DRUGS (22)
  1. ALDREB [Concomitant]
     Indication: ABDOMINAL INFECTION
     Dosage: 1200 MG, 2X/DAY
     Route: 041
     Dates: start: 20151027, end: 20151030
  2. FILGRASTIM [Concomitant]
     Active Substance: FILGRASTIM
     Indication: ABDOMINAL INFECTION
     Dosage: 150 MG, 1X/DAY
     Route: 058
     Dates: start: 20151027, end: 20151029
  3. DAI-KENCHU-TO [Concomitant]
     Active Substance: MALTOSE
     Indication: LIVER ABSCESS
  4. QUETIAPINE [Concomitant]
     Active Substance: QUETIAPINE
     Indication: DELIRIUM
     Dosage: 100 MG, 1X/DAY
     Route: 048
     Dates: start: 20150810, end: 20151029
  5. TYGACIL [Suspect]
     Active Substance: TIGECYCLINE
     Indication: LIVER ABSCESS
  6. AMIKACIN [Concomitant]
     Active Substance: AMIKACIN
     Indication: ABDOMINAL INFECTION
     Dosage: 600 MG, 1X/DAY
     Route: 042
     Dates: start: 20151027, end: 20151030
  7. FUNGUARD [Concomitant]
     Active Substance: MICAFUNGIN SODIUM
     Indication: ABDOMINAL INFECTION
     Dosage: 150 MG, 1X/DAY
     Route: 041
     Dates: start: 20150801, end: 20151030
  8. AMIKACIN [Concomitant]
     Active Substance: AMIKACIN
     Indication: LIVER ABSCESS
  9. ALDREB [Concomitant]
     Indication: LIVER ABSCESS
  10. TYGACIL [Suspect]
     Active Substance: TIGECYCLINE
     Indication: ABDOMINAL INFECTION
     Dosage: UNK
     Route: 041
     Dates: start: 20151027, end: 20151030
  11. TEICOPLANIN [Concomitant]
     Active Substance: TEICOPLANIN
     Indication: ABDOMINAL INFECTION
     Dosage: 400 MG, 1X/DAY
     Route: 041
     Dates: start: 20150811, end: 20151030
  12. TEICOPLANIN [Concomitant]
     Active Substance: TEICOPLANIN
     Indication: LIVER ABSCESS
  13. ARTIST [Concomitant]
     Active Substance: CARVEDILOL
     Indication: ATRIAL FIBRILLATION
     Dosage: 10 MG, 2X/DAY
     Route: 048
     Dates: end: 20151030
  14. MEROPENEM. [Concomitant]
     Active Substance: MEROPENEM
     Indication: ABDOMINAL INFECTION
     Dosage: 2 G, 3X/DAY
     Route: 041
     Dates: start: 20150810, end: 20151030
  15. LANSOPRAZOLE. [Concomitant]
     Active Substance: LANSOPRAZOLE
     Dosage: 30 MG, 1X/DAY
     Route: 048
     Dates: start: 20150924, end: 20151030
  16. MUCODYNE [Concomitant]
     Active Substance: CARBOCYSTEINE
     Indication: SECRETION DISCHARGE
     Dosage: 10 ML, 3X/DAY
     Route: 048
     Dates: start: 20150908, end: 20151030
  17. AMBROXOL [Concomitant]
     Active Substance: AMBROXOL
     Indication: SECRETION DISCHARGE
     Dosage: 15 MG, 3X/DAY
     Route: 048
     Dates: start: 20150908, end: 20151030
  18. RESPLEN [Concomitant]
     Active Substance: EPRAZINONE
     Indication: SECRETION DISCHARGE
     Dosage: 20 MG, 3X/DAY
     Route: 048
     Dates: start: 20150908, end: 20151030
  19. FUNGUARD [Concomitant]
     Active Substance: MICAFUNGIN SODIUM
     Indication: LIVER ABSCESS
  20. FILGRASTIM [Concomitant]
     Active Substance: FILGRASTIM
     Indication: LIVER ABSCESS
  21. MEROPENEM. [Concomitant]
     Active Substance: MEROPENEM
     Indication: LIVER ABSCESS
  22. DAI-KENCHU-TO [Concomitant]
     Active Substance: MALTOSE
     Indication: ABDOMINAL INFECTION
     Dosage: 2 DF, 3X/DAY (2 PACKS)
     Route: 048
     Dates: start: 20150807, end: 20151030

REACTIONS (1)
  - Septic shock [Fatal]

NARRATIVE: CASE EVENT DATE: 20151027
